FAERS Safety Report 7746331-9 (Version None)
Quarter: 2011Q3

REPORT INFORMATION
  Report Type: 
  Country: None (occurrence: None)
  Receive Date: 20110907
  Receipt Date: 20110825
  Transmission Date: 20111222
  Serious: Yes (Hospitalization)
  Sender: FDA-Public Use
  Company Number: 2011AP001884

PATIENT
  Age: 63 Year
  Sex: Male

DRUGS (17)
  1. BENDROFLUMETHIAZIDE (BENDROFLUMETHIAZIDE) [Concomitant]
  2. DICLOFENAC SODIUM [Concomitant]
  3. LANSOPRAZOLE [Concomitant]
  4. RAMIPRIL [Concomitant]
  5. SIMVASTATIN [Concomitant]
  6. FLOXACILLIN SODIUM [Concomitant]
  7. ACETAMINOPHEN [Concomitant]
  8. DIAZEPAM [Concomitant]
  9. CODEINE PHOSPHATE (CODEINE PHOSPHATE) [Concomitant]
  10. AMOXICILLIN [Concomitant]
  11. DICLOFENAC SODIUM [Concomitant]
  12. ALENDRONATE SODIUM [Suspect]
     Indication: OSTEOPOROSIS
     Dosage: 70 MG;QW
     Route: 048
     Dates: start: 20110704, end: 20110704
  13. ERYTHROMYCIN [Concomitant]
  14. TRAMADOL HYDROCHLORIDE [Concomitant]
  15. ATORVASTATIN [Concomitant]
  16. MORPHINE SULFATE [Concomitant]
  17. DOCUSATE SODIUM (DOCUSATE SODIUM) [Concomitant]

REACTIONS (3)
  - HELICOBACTER TEST POSITIVE [None]
  - ABDOMINAL PAIN [None]
  - DUODENAL ULCER PERFORATION [None]
